FAERS Safety Report 20647877 (Version 1)
Quarter: 2022Q1

REPORT INFORMATION
  Report Type: Spontaneous
  Country: CN (occurrence: CN)
  Receive Date: 20220329
  Receipt Date: 20220329
  Transmission Date: 20220424
  Serious: Yes (Hospitalization)
  Sender: FDA-Public Use
  Company Number: CN-009507513-2203CHN008456

PATIENT
  Age: 69 Year
  Sex: Male
  Weight: 77.5 kg

DRUGS (6)
  1. KEYTRUDA [Suspect]
     Active Substance: PEMBROLIZUMAB
     Indication: Lung neoplasm malignant
     Dosage: 200 MILLIGRAM/SQ. METER, ONCE (FIRST CYCLE)
     Route: 041
     Dates: start: 20211011, end: 20211011
  2. KEYTRUDA [Suspect]
     Active Substance: PEMBROLIZUMAB
     Dosage: UNK (THIRD CYCLE)
     Dates: start: 20220118, end: 20220118
  3. PACLITAXEL [Suspect]
     Active Substance: PACLITAXEL
     Indication: Lung neoplasm malignant
     Dosage: UNK (FIRST CYCLE)
     Dates: start: 20211011, end: 20211011
  4. PACLITAXEL [Suspect]
     Active Substance: PACLITAXEL
     Dosage: UNK (THIRD CYCLE)
     Dates: start: 20220118, end: 20220118
  5. CARBOPLATIN [Suspect]
     Active Substance: CARBOPLATIN
     Indication: Lung neoplasm malignant
     Dosage: UNK (FIRST CYCLE)
     Dates: start: 20211011, end: 20211011
  6. CARBOPLATIN [Suspect]
     Active Substance: CARBOPLATIN
     Dosage: UNK (THIRD CYCLE)
     Dates: start: 20220118, end: 20220118

REACTIONS (5)
  - Dysphagia [Recovering/Resolving]
  - Weight decreased [Recovering/Resolving]
  - Hyposmia [Recovering/Resolving]
  - Hypogeusia [Recovering/Resolving]
  - Incorrect dose administered [Unknown]

NARRATIVE: CASE EVENT DATE: 20211011
